FAERS Safety Report 15456503 (Version 2)
Quarter: 2018Q4

REPORT INFORMATION
  Report Type: Spontaneous
  Country: IN (occurrence: IN)
  Receive Date: 20181002
  Receipt Date: 20181105
  Transmission Date: 20190204
  Serious: Yes (Hospitalization)
  Sender: FDA-Public Use
  Company Number: IN-PFIZER INC-2018393609

PATIENT
  Age: 41 Year
  Sex: Female

DRUGS (1)
  1. PALBACE [Suspect]
     Active Substance: PALBOCICLIB
     Indication: BREAST CANCER METASTATIC
     Dosage: 125 MG, 1X/DAY
     Route: 048

REACTIONS (5)
  - Asthenia [Unknown]
  - Full blood count decreased [Recovering/Resolving]
  - Dizziness [Unknown]
  - Malaise [Not Recovered/Not Resolved]
  - Dyspnoea [Recovered/Resolved]
